FAERS Safety Report 9634060 (Version 4)
Quarter: 2014Q4

REPORT INFORMATION
  Report Type: Report from Study
  Country: JP (occurrence: JP)
  Receive Date: 20131021
  Receipt Date: 20141031
  Transmission Date: 20150529
  Serious: Yes (Hospitalization)
  Sender: FDA-Public Use
  Company Number: JP-NOVOPROD-390060

PATIENT
  Age: 3 Year
  Sex: Female
  Weight: 11.9 kg

DRUGS (1)
  1. NORDITROPIN [Suspect]
     Active Substance: SOMATROPIN
     Indication: SMALL FOR DATES BABY
     Dosage: 0.35 MG, QD
     Route: 058
     Dates: start: 20121012

REACTIONS (2)
  - Otitis media [Recovered/Resolved]
  - Adenoidal hypertrophy [Recovered/Resolved]

NARRATIVE: CASE EVENT DATE: 201211
